FAERS Safety Report 10381551 (Version 1)
Quarter: 2014Q1

REPORT INFORMATION
  Report Type: Spontaneous
  Country: US (occurrence: None)
  Receive Date: 20140306
  Receipt Date: 20140306
  Transmission Date: 20141002
  Serious: Yes (Hospitalization, Other)
  Sender: FDA-Public Use
  Company Number: 163-21880-13023629

PATIENT
  Age: 76 Year
  Sex: Male

DRUGS (8)
  1. REVLIMID [Suspect]
     Indication: MYELODYSPLASTIC SYNDROME
     Dosage: 28 IN 28 D
     Route: 048
     Dates: start: 20130209
  2. ATORVASTATIN CALCIUM [Concomitant]
  3. COLCRYS (COLCHICINE) [Concomitant]
  4. ICAR-C (ICAR-C) [Concomitant]
  5. METOPROLOL SUCCINATE ER (METOPROLOL SUCCINATE) [Concomitant]
  6. PRADAXA (DABIGATRAN ETEXILATE MESIDLATE) [Concomitant]
  7. PREDNISONE [Concomitant]
  8. TIKOSYN (DOFETILIDE) [Concomitant]

REACTIONS (3)
  - Platelet count decreased [None]
  - Sepsis [None]
  - Pneumonia [None]
